FAERS Safety Report 13137002 (Version 2)
Quarter: 2017Q1

REPORT INFORMATION
  Report Type: Spontaneous
  Country: IT (occurrence: IT)
  Receive Date: 20170123
  Receipt Date: 20170223
  Transmission Date: 20170428
  Serious: Yes (Life-Threatening, Hospitalization)
  Sender: FDA-Public Use
  Company Number: IT-ACCORD-047492

PATIENT
  Age: 79 Year
  Weight: 71 kg

DRUGS (12)
  1. OXALIPLATINO ACCORD [Suspect]
     Active Substance: OXALIPLATIN
     Indication: COLORECTAL ADENOCARCINOMA
     Dosage: 170 MG CYCLICAL
     Dates: start: 20161202
  2. NEBILOX [Concomitant]
     Active Substance: NEBIVOLOL HYDROCHLORIDE
  3. BEVACIZUMAB [Suspect]
     Active Substance: BEVACIZUMAB
     Indication: COLORECTAL ADENOCARCINOMA
     Dosage: 532.5 MG CYCLICAL
     Route: 042
     Dates: start: 20161202
  4. GLICONORM [Concomitant]
     Active Substance: GLYBURIDE\METFORMIN
  5. RANITIDINE. [Concomitant]
     Active Substance: RANITIDINE
     Dosage: 100 MG
     Dates: start: 20161202
  6. ONDANSETRON [Concomitant]
     Active Substance: ONDANSETRON
     Dosage: STRENGTH: 8 MG
     Dates: start: 20161202
  7. DEXAMETHASONE. [Concomitant]
     Active Substance: DEXAMETHASONE
     Dosage: STRENGTH: 12 MG
     Dates: start: 20161202
  8. CAPECITABINA ACCORD [Suspect]
     Active Substance: CAPECITABINE
     Indication: COLORECTAL ADENOCARCINOMA
     Dates: start: 20161202
  9. METFORAL [Concomitant]
     Active Substance: METFORMIN HYDROCHLORIDE
  10. COTAREG [Concomitant]
     Active Substance: HYDROCHLOROTHIAZIDE\VALSARTAN
  11. CHLORPHENAMINE [Concomitant]
     Active Substance: CHLORPHENIRAMINE MALEATE
     Dosage: 10 MG
     Dates: start: 20161202
  12. LANSOPRAZOLE. [Concomitant]
     Active Substance: LANSOPRAZOLE

REACTIONS (5)
  - Leukopenia [Recovering/Resolving]
  - Haematochezia [Recovering/Resolving]
  - Thrombocytopenia [Recovering/Resolving]
  - Rash [Recovering/Resolving]
  - Diarrhoea [Recovering/Resolving]

NARRATIVE: CASE EVENT DATE: 20161216
